FAERS Safety Report 7269193-5 (Version None)
Quarter: 2011Q1

REPORT INFORMATION
  Report Type: 
  Country: None (occurrence: None)
  Receive Date: 20110119
  Receipt Date: 20110112
  Transmission Date: 20110831
  Serious: Yes (Other)
  Sender: FDA-Public Use
  Company Number: 2010024970

PATIENT
  Sex: Female
  Weight: 70.3075 kg

DRUGS (1)
  1. VIVAGLOBIN [Suspect]
     Indication: SELECTIVE IGG SUBCLASS DEFICIENCY
     Dosage: (13.76 G, 13.76 G (86 ML) WEEKLY AT RATE OF 120 ML/HOUR SUBCUTANEOUS)
     Route: 058
     Dates: start: 20100401, end: 20100604

REACTIONS (1)
  - HAEMOGLOBIN DECREASED [None]
